FAERS Safety Report 9270451 (Version 5)
Quarter: 2014Q2

REPORT INFORMATION
  Report Type: Spontaneous
  Country: JP (occurrence: JP)
  Receive Date: 20130503
  Receipt Date: 20140612
  Transmission Date: 20141212
  Serious: Yes (Hospitalization, Other)
  Sender: FDA-Public Use
  Company Number: JP-ASTRAZENECA-2013SE27185

PATIENT
  Age: 9662 Day
  Sex: Female
  Weight: 33.9 kg

DRUGS (41)
  1. SEROQUEL [Suspect]
     Indication: SCHIZOPHRENIA
     Route: 048
     Dates: start: 201109, end: 20130212
  2. SEROQUEL [Suspect]
     Indication: DISSOCIATIVE DISORDER
     Route: 048
     Dates: start: 201109, end: 20130212
  3. SEROQUEL [Suspect]
     Indication: SCHIZOPHRENIA
     Route: 048
     Dates: start: 20130215, end: 20130215
  4. SEROQUEL [Suspect]
     Indication: DISSOCIATIVE DISORDER
     Route: 048
     Dates: start: 20130215, end: 20130215
  5. SEROQUEL [Suspect]
     Indication: SCHIZOPHRENIA
     Route: 048
     Dates: start: 20130216, end: 20130311
  6. SEROQUEL [Suspect]
     Indication: DISSOCIATIVE DISORDER
     Route: 048
     Dates: start: 20130216, end: 20130311
  7. SEROQUEL [Suspect]
     Indication: SCHIZOPHRENIA
     Route: 048
     Dates: start: 20130312, end: 20130323
  8. SEROQUEL [Suspect]
     Indication: DISSOCIATIVE DISORDER
     Route: 048
     Dates: start: 20130312, end: 20130323
  9. SERENACE [Suspect]
     Indication: RESTLESSNESS
     Route: 041
     Dates: start: 20130311, end: 20130315
  10. SERENACE [Suspect]
     Indication: SCHIZOPHRENIA
     Route: 041
     Dates: start: 20130311, end: 20130315
  11. SERENACE [Suspect]
     Indication: RESTLESSNESS
     Route: 048
     Dates: start: 20130325, end: 20130403
  12. SERENACE [Suspect]
     Indication: SCHIZOPHRENIA
     Route: 048
     Dates: start: 20130325, end: 20130403
  13. PANTOL [Suspect]
     Indication: ILEUS
     Route: 065
     Dates: start: 20130312, end: 20130320
  14. PROSTARMON F [Suspect]
     Indication: CONSTIPATION
     Route: 041
     Dates: start: 20130315, end: 20130317
  15. PROSTARMON F [Suspect]
     Indication: ILEUS
     Route: 041
     Dates: start: 20130315, end: 20130317
  16. DORAL [Concomitant]
     Indication: INSOMNIA
     Dates: start: 20130319
  17. CONTOMIN [Concomitant]
     Indication: SCHIZOPHRENIA
     Dates: start: 20130215, end: 20130307
  18. MAGNESIUM OXIDE [Concomitant]
     Indication: CONSTIPATION
     Dates: start: 20130217
  19. MAGNESIUM OXIDE [Concomitant]
     Indication: ILEUS
     Dates: start: 20130217
  20. PURSENIDE [Concomitant]
     Indication: CONSTIPATION
     Dates: start: 20130308
  21. PURSENIDE [Concomitant]
     Indication: ILEUS
     Dates: start: 20130308
  22. LAXOBERON [Concomitant]
     Indication: CONSTIPATION
     Route: 048
     Dates: start: 20130309
  23. LAXOBERON [Concomitant]
     Indication: ILEUS
     Route: 048
     Dates: start: 20130309
  24. AMOBAN [Concomitant]
     Indication: INSOMNIA
     Dates: start: 20130317
  25. HIRNAMIN [Concomitant]
     Indication: RESTLESSNESS
     Dates: start: 20130307, end: 20130307
  26. PANSPORIN [Concomitant]
     Indication: CONSTIPATION
     Dates: start: 20130311, end: 20130315
  27. PANSPORIN [Concomitant]
     Indication: ILEUS
     Dates: start: 20130311, end: 20130315
  28. NEO MINOPHAGEN C [Concomitant]
     Indication: DRUG-INDUCED LIVER INJURY
     Dates: start: 20130318, end: 20130329
  29. LACB-R [Concomitant]
     Dates: start: 20130322
  30. DEPAKENE-R [Concomitant]
     Indication: DISSOCIATIVE DISORDER
     Dates: start: 201109
  31. PSYCHOTROPIC AGENTS [Concomitant]
     Indication: DISSOCIATIVE DISORDER
     Dates: start: 201109
  32. HYPNOTIC AGENT [Concomitant]
     Indication: DISSOCIATIVE DISORDER
     Dates: start: 201109
  33. MUCOSTA [Concomitant]
     Route: 048
     Dates: start: 20130215, end: 20130310
  34. MAGLAX [Concomitant]
     Route: 048
     Dates: start: 20130217, end: 20130301
  35. NAUZELIN [Concomitant]
     Dates: start: 20130320, end: 20130322
  36. DAIKENCHUUTOU [Concomitant]
     Route: 048
     Dates: start: 20130322, end: 20130323
  37. BFLUID [Concomitant]
     Dates: start: 20130311, end: 20130328
  38. MAXIPIME [Concomitant]
     Dates: start: 20130322, end: 20130327
  39. SOLDEM 3A [Concomitant]
     Dates: start: 20130312, end: 20130315
  40. VITAMEDIN [Concomitant]
     Dates: start: 20130312, end: 20130328
  41. GASTER [Concomitant]
     Dates: start: 20130312, end: 20130328

REACTIONS (7)
  - Lymphopenia [Recovering/Resolving]
  - Drug-induced liver injury [Recovering/Resolving]
  - Granulocytopenia [Recovering/Resolving]
  - Thrombocytopenia [Recovering/Resolving]
  - Ileus paralytic [Recovering/Resolving]
  - White blood cell count decreased [Recovered/Resolved]
  - Intentional product misuse [Unknown]
